FAERS Safety Report 25222982 (Version 3)
Quarter: 2025Q2

REPORT INFORMATION
  Report Type: Spontaneous
  Country: IT (occurrence: IT)
  Receive Date: 20250422
  Receipt Date: 20250529
  Transmission Date: 20250716
  Serious: Yes (Other)
  Sender: UCB
  Company Number: IT-UCBSA-2025022814

PATIENT
  Age: 21 Year
  Sex: Male

DRUGS (3)
  1. VIMPAT [Suspect]
     Active Substance: LACOSAMIDE
     Indication: Partial seizures
     Dosage: 150 MILLIGRAM, 2X/DAY (BID)
  2. BECLOMETHASONE DIPROPIONATE [Concomitant]
     Active Substance: BECLOMETHASONE DIPROPIONATE
     Indication: Asthma
  3. FORMOTEROL FUMARATE DIHYDRATE [Concomitant]
     Active Substance: FORMOTEROL FUMARATE DIHYDRATE
     Indication: Asthma

REACTIONS (8)
  - Focal dyscognitive seizures [Unknown]
  - Acne [Recovering/Resolving]
  - Keloid scar [Recovering/Resolving]
  - Acne cystic [Recovering/Resolving]
  - Rash pustular [Recovering/Resolving]
  - Purulent discharge [Recovered/Resolved]
  - Bloody discharge [Recovered/Resolved]
  - Discomfort [Recovered/Resolved]
